FAERS Safety Report 17039020 (Version 1)
Quarter: 2019Q4

REPORT INFORMATION
  Report Type: Report from Study
  Country: AT (occurrence: AT)
  Receive Date: 20191115
  Receipt Date: 20191115
  Transmission Date: 20200122
  Serious: Yes (Other)
  Sender: FDA-Public Use
  Company Number: AT-MYLANLABS-2019M1109793

PATIENT
  Age: 59 Year
  Sex: Female
  Weight: 65 kg

DRUGS (17)
  1. TRASTUZUMAB. [Suspect]
     Active Substance: TRASTUZUMAB
     Indication: BREAST CANCER
     Dosage: MOST RECENT DOSE 17/JUL/2018
     Route: 041
     Dates: start: 20180627
  2. PERTUZUMAB. [Suspect]
     Active Substance: PERTUZUMAB
     Indication: BREAST CANCER
     Dosage: MOST RECENT DOSE 17/JUL/2018
     Route: 042
     Dates: start: 20180627
  3. DALACIN C                          /00166001/ [Concomitant]
     Active Substance: CLINDAMYCIN PHOSPHATE
     Dosage: ONGOING = CHECKED
     Route: 065
     Dates: start: 20190205
  4. LETROZOLE. [Suspect]
     Active Substance: LETROZOLE
     Indication: BREAST CANCER
     Dosage: 2.5 MILLIGRAM, QD
     Route: 048
     Dates: start: 20181130
  5. PERTUZUMAB. [Suspect]
     Active Substance: PERTUZUMAB
     Dosage: UNK
     Dates: start: 20180717
  6. TAXOTERE [Suspect]
     Active Substance: DOCETAXEL
     Indication: BREAST CANCER
     Dosage: MOST RECENT DOSE 05/NOV/2018
     Route: 042
     Dates: start: 20180627
  7. DUROTIV [Concomitant]
     Active Substance: ESOMEPRAZOLE
     Dosage: ONGOING = CHECKED
     Route: 065
     Dates: start: 20180625
  8. ESOMEPRAZOLE. [Concomitant]
     Active Substance: ESOMEPRAZOLE MAGNESIUM
     Dosage: ONGOING = CHECKED
     Route: 065
     Dates: start: 20180719
  9. DIBONDRIN [Concomitant]
     Active Substance: DIPHENHYDRAMINE HYDROCHLORIDE
     Dosage: ONGOING = CHECKED
     Route: 065
     Dates: start: 20180626
  10. DICLOFENAC [Concomitant]
     Active Substance: DICLOFENAC
     Dosage: ONGOING = CHECKED
     Route: 065
     Dates: start: 20180816
  11. XGEVA [Suspect]
     Active Substance: DENOSUMAB
     Indication: BREAST CANCER
     Dosage: 120 MILLIGRAM, MONTHLY
     Route: 058
     Dates: start: 20180628
  12. TAXOTERE [Suspect]
     Active Substance: DOCETAXEL
     Dosage: UNK
     Dates: start: 20181105
  13. FORTECORTIN                        /00016001/ [Concomitant]
     Active Substance: DEXAMETHASONE
     Dosage: ONGOING = CHECKED
     Route: 065
     Dates: start: 20180626
  14. ZOFRAN [Concomitant]
     Active Substance: ONDANSETRON HYDROCHLORIDE
     Dosage: ONGOING = CHECKED
     Route: 065
     Dates: start: 20180626
  15. TRASTUZUMAB. [Suspect]
     Active Substance: TRASTUZUMAB
     Dosage: UNK
     Dates: start: 20180717
  16. DAFLON                             /00426001/ [Concomitant]
     Active Substance: DIOSMIN
     Dosage: ONGOING = CHECKED
     Route: 065
     Dates: start: 20190509
  17. DEKRISTOLMIN [Concomitant]
     Active Substance: CHOLECALCIFEROL
     Dosage: ONGOING = CHECKED
     Route: 065
     Dates: start: 20180629

REACTIONS (2)
  - Diarrhoea [Recovered/Resolved]
  - Clostridial infection [Recovered/Resolved]

NARRATIVE: CASE EVENT DATE: 20190415
